FAERS Safety Report 7059054-9 (Version None)
Quarter: 2010Q4

REPORT INFORMATION
  Report Type: 
  Country: None (occurrence: None)
  Receive Date: 20101025
  Receipt Date: 20101014
  Transmission Date: 20110411
  Serious: No
  Sender: FDA-Public Use
  Company Number: US-BIOGENIDEC-2010BI016350

PATIENT
  Sex: Female

DRUGS (1)
  1. TYSABRI [Suspect]
     Indication: MULTIPLE SCLEROSIS
     Route: 042
     Dates: start: 20100121

REACTIONS (10)
  - BRONCHITIS [None]
  - DECREASED APPETITE [None]
  - DECREASED IMMUNE RESPONSIVENESS [None]
  - GASTROENTERITIS [None]
  - INFLUENZA [None]
  - OROPHARYNGEAL PAIN [None]
  - SINUSITIS [None]
  - UPPER RESPIRATORY TRACT INFECTION [None]
  - VAGINAL INFECTION [None]
  - WEIGHT DECREASED [None]
